FAERS Safety Report 6283022-8 (Version None)
Quarter: 2009Q3

REPORT INFORMATION
  Report Type: 
  Country: None (occurrence: None)
  Receive Date: 20090724
  Receipt Date: 20090713
  Transmission Date: 20100115
  Serious: Yes (Other)
  Sender: FDA-Public Use
  Company Number: US-BRISTOL-MYERS SQUIBB COMPANY-14709059

PATIENT
  Age: 31 Year
  Sex: Male

DRUGS (3)
  1. EFAVIRENZ [Suspect]
     Indication: HIV INFECTION
     Dosage: INTERRUPTED FROM 09-JUN-2009 TO 17-JUN-2009
     Route: 048
     Dates: start: 20090323
  2. TRUVADA [Suspect]
     Dosage: 1 DF = 200/300MG; INTERRUPTED FROM 09-JUN-2009 TO 17-JUN-2009
     Route: 048
     Dates: start: 20090323
  3. SULFAMETHOXAZOLE AND TRIMETHOPRIM [Concomitant]
     Indication: PROPHYLAXIS
     Dates: start: 20090313

REACTIONS (2)
  - NEUTROPHIL COUNT DECREASED [None]
  - ORAL CANDIDIASIS [None]
